FAERS Safety Report 7461831-7 (Version None)
Quarter: 2011Q2

REPORT INFORMATION
  Report Type: 
  Country: None (occurrence: None)
  Receive Date: 20110506
  Receipt Date: 20110503
  Transmission Date: 20111010
  Serious: Yes (Death, Other)
  Sender: FDA-Public Use
  Company Number: US-BAYER-2011-038337

PATIENT
  Age: 63 Year
  Sex: Male

DRUGS (2)
  1. BEVACIZUMAB [Suspect]
     Indication: RENAL CELL CARCINOMA
     Dosage: 5 MG/KG, QD (DAYS 1 AND 15)
     Route: 042
     Dates: start: 20101103, end: 20110112
  2. SORAFENIB (RAF KINASE INHIBITOR) [Suspect]
     Indication: RENAL CELL CARCINOMA
     Dosage: 200 MG, BID DAYS 1-5, 8-12, 15-19 AND 22-26
     Route: 048
     Dates: start: 20101103, end: 20110121

REACTIONS (3)
  - INCOHERENT [None]
  - APHASIA [None]
  - DEATH [None]
